FAERS Safety Report 11018814 (Version 2)
Quarter: 2015Q2

REPORT INFORMATION
  Report Type: Spontaneous
  Country: US (occurrence: US)
  Receive Date: 20150412
  Receipt Date: 20150524
  Transmission Date: 20150821
  Serious: No
  Sender: FDA-Public Use
  Company Number: US-JNJFOC-20121012959

PATIENT
  Age: 17 Year
  Sex: Female
  Weight: 45.6 kg

DRUGS (17)
  1. DOXORUBICIN [Suspect]
     Active Substance: DOXORUBICIN
     Indication: ACUTE MYELOID LEUKAEMIA
     Dosage: 50 MG/M2 GIVEN DAYS1,3 AND5 DURING INDUCTION I, OVER 1-15 MINUTES ON DAY-1,3 AND 5
     Route: 042
     Dates: end: 20120613
  2. DEXAMETHASONE. [Concomitant]
     Active Substance: DEXAMETHASONE
     Indication: VASODILATION PROCEDURE
     Dosage: Q 6 HOURLY DAY 1- DAY 7 AND THEN TAPER DAY 8- DAY 10
     Route: 042
  3. HYDROMORPHONE [Concomitant]
     Active Substance: HYDROMORPHONE
     Indication: PRODUCT USED FOR UNKNOWN INDICATION
     Route: 065
  4. ETOPOSIDE. [Suspect]
     Active Substance: ETOPOSIDE
     Indication: ACUTE MYELOID LEUKAEMIA
     Dosage: OVER 60-120 MINUTES ON DAYS 1-5
     Route: 042
     Dates: end: 20120922
  5. VELCADE [Suspect]
     Active Substance: BORTEZOMIB
     Indication: ACUTE MYELOID LEUKAEMIA
     Route: 042
     Dates: end: 20120925
  6. METRONIDAZOLE. [Concomitant]
     Active Substance: METRONIDAZOLE
     Indication: DIARRHOEA
     Route: 065
     Dates: start: 20120929
  7. ANTI NAUSEA MEDICATION [Concomitant]
     Indication: NAUSEA
     Route: 065
  8. VORICONAZOLE. [Concomitant]
     Active Substance: VORICONAZOLE
     Indication: DIARRHOEA
     Route: 065
     Dates: start: 20120929
  9. CYTARABINE. [Suspect]
     Active Substance: CYTARABINE
     Indication: ACUTE MYELOID LEUKAEMIA
     Dosage: BID, OVER 15-30 MINUTES ON DAYS 1-8
     Route: 042
     Dates: end: 20120922
  10. VELCADE [Suspect]
     Active Substance: BORTEZOMIB
     Indication: ACUTE MYELOID LEUKAEMIA
     Dosage: 1 MG/M2 DOSE DURING INTENSIFICATION I, PUSH OVER 3-5 SECONDS ON DAYS 1, 4 AND 8
     Route: 042
  11. DAUNORUBICIN [Concomitant]
     Active Substance: DAUNORUBICIN
     Indication: ACUTE MYELOID LEUKAEMIA
     Dosage: DAUNORUBICIN 50 MG/M2 GIVEN DAYS 1, 3 AND 5 DURING INDUCTION I.
     Route: 065
     Dates: end: 20120613
  12. LORAZEPAM. [Concomitant]
     Active Substance: LORAZEPAM
     Indication: PRODUCT USED FOR UNKNOWN INDICATION
     Route: 065
  13. PAIN MEDICATION [Concomitant]
     Active Substance: UNSPECIFIED INGREDIENT
     Indication: PAIN
     Route: 065
  14. DEXAMETHASONE. [Concomitant]
     Active Substance: DEXAMETHASONE
     Indication: SKIN EXFOLIATION
     Dosage: Q 6 HOURLY DAY 1- DAY 7 AND THEN TAPER DAY 8- DAY 10
     Route: 042
  15. HYDROCODONE/ACETAMINOPHEN [Concomitant]
     Active Substance: ACETAMINOPHEN\HYDROCODONE
     Indication: PRODUCT USED FOR UNKNOWN INDICATION
     Route: 065
  16. LEVOFLOXACINE [Concomitant]
     Active Substance: LEVOFLOXACIN
     Indication: PRODUCT USED FOR UNKNOWN INDICATION
     Route: 065
  17. DIPHENHYDRAMINE [Concomitant]
     Active Substance: DIPHENHYDRAMINE
     Indication: PRODUCT USED FOR UNKNOWN INDICATION
     Route: 065

REACTIONS (2)
  - Vasodilation procedure [Unknown]
  - Skin exfoliation [Unknown]
